FAERS Safety Report 13598916 (Version 1)
Quarter: 2017Q2

REPORT INFORMATION
  Report Type: Spontaneous
  Country: IE (occurrence: IE)
  Receive Date: 20170531
  Receipt Date: 20170531
  Transmission Date: 20170830
  Serious: Yes (Life-Threatening, Hospitalization, Other)
  Sender: FDA-Public Use
  Company Number: IE-ABBVIE-17P-229-1992935-00

PATIENT
  Age: 13 Year
  Sex: Female
  Weight: 64.4 kg

DRUGS (2)
  1. ROCEPHIN [Suspect]
     Active Substance: CEFTRIAXONE SODIUM
     Indication: INFECTION
     Dosage: STAT DOSE
     Route: 042
     Dates: start: 20170510, end: 20170510
  2. KLACID [Suspect]
     Active Substance: CLARITHROMYCIN
     Indication: INFECTION
     Route: 042
     Dates: start: 20170511, end: 20170512

REACTIONS (4)
  - Dyspnoea [Recovered/Resolved]
  - Rash [Recovered/Resolved]
  - Wheezing [Recovered/Resolved]
  - Angioedema [Recovered/Resolved]
